FAERS Safety Report 11517846 (Version 1)
Quarter: 2015Q3

REPORT INFORMATION
  Report Type: Spontaneous
  Country: IT (occurrence: IT)
  Receive Date: 20150917
  Receipt Date: 20150917
  Transmission Date: 20151125
  Serious: Yes (Life-Threatening)
  Sender: FDA-Public Use
  Company Number: IT-SA-2015SA140368

PATIENT
  Age: 65 Year
  Sex: Male

DRUGS (3)
  1. COLIMICIN [Suspect]
     Active Substance: COLISTIN SULFATE
     Indication: BRAIN ABSCESS
     Route: 042
     Dates: start: 20150904, end: 20150907
  2. RIFADIN [Suspect]
     Active Substance: RIFAMPIN
     Indication: BRAIN ABSCESS
     Route: 042
     Dates: start: 20150904, end: 20150907
  3. MEROPENEM. [Suspect]
     Active Substance: MEROPENEM
     Indication: BRAIN ABSCESS
     Route: 042
     Dates: start: 20150729, end: 20150907

REACTIONS (5)
  - Polyserositis [Not Recovered/Not Resolved]
  - Hyperpyrexia [Not Recovered/Not Resolved]
  - Acute kidney injury [Not Recovered/Not Resolved]
  - Tremor [Not Recovered/Not Resolved]
  - Rash [Not Recovered/Not Resolved]

NARRATIVE: CASE EVENT DATE: 20150907
